FAERS Safety Report 15740711 (Version 1)
Quarter: 2018Q4

REPORT INFORMATION
  Report Type: Spontaneous
  Country: IT (occurrence: IT)
  Receive Date: 20181219
  Receipt Date: 20181219
  Transmission Date: 20190205
  Serious: Yes (Hospitalization)
  Sender: FDA-Public Use
  Company Number: IT-BEH-2018097761

PATIENT
  Age: 68 Year
  Sex: Male

DRUGS (3)
  1. METFORMIN HYDROCHLORIDE. [Concomitant]
     Active Substance: METFORMIN HYDROCHLORIDE
     Indication: PRODUCT USED FOR UNKNOWN INDICATION
     Dosage: 1700 MG, UNK
     Route: 048
  2. PRIVIGEN [Suspect]
     Active Substance: HUMAN IMMUNOGLOBULIN G
     Indication: B-CELL SMALL LYMPHOCYTIC LYMPHOMA
     Dosage: UNK
     Route: 042
     Dates: start: 20180418, end: 20180717
  3. SIMVASTATIN. [Concomitant]
     Active Substance: SIMVASTATIN
     Indication: PRODUCT USED FOR UNKNOWN INDICATION
     Dosage: 20 MG, UNK
     Route: 048

REACTIONS (2)
  - Chest discomfort [Recovered/Resolved]
  - Respiratory fatigue [Recovered/Resolved]

NARRATIVE: CASE EVENT DATE: 20180717
